FAERS Safety Report 7437091-X (Version None)
Quarter: 2011Q2

REPORT INFORMATION
  Report Type: 
  Country: None (occurrence: None)
  Receive Date: 20110426
  Receipt Date: 20110419
  Transmission Date: 20111010
  Serious: Yes (Death)
  Sender: FDA-Public Use
  Company Number: PHHY2011IN34021

PATIENT
  Age: 4 Year
  Sex: Female

DRUGS (1)
  1. ASUNRA [Suspect]
     Dosage: 300MG (3 TABLETS OF 100MG).
     Route: 048

REACTIONS (1)
  - DEATH [None]
